FAERS Safety Report 23923135 (Version 1)
Quarter: 2024Q2

REPORT INFORMATION
  Report Type: Spontaneous
  Country: US (occurrence: None)
  Receive Date: 20240531
  Receipt Date: 20240531
  Transmission Date: 20240716
  Serious: Yes (Other)
  Sender: FDA-Public Use
  Company Number: 2024A122991

PATIENT
  Sex: Female

DRUGS (1)
  1. DAPAGLIFLOZIN [Suspect]
     Active Substance: DAPAGLIFLOZIN
     Dosage: ONCE
     Route: 048

REACTIONS (13)
  - Blood glucose increased [Unknown]
  - Dehydration [Unknown]
  - Hypersomnia [Unknown]
  - Anal incontinence [Unknown]
  - Somnolence [Unknown]
  - Mobility decreased [Unknown]
  - Hypophagia [Unknown]
  - Memory impairment [Unknown]
  - Loss of consciousness [Unknown]
  - Vomiting [Unknown]
  - Retching [Unknown]
  - Diarrhoea [Unknown]
  - Product use issue [Unknown]
